FAERS Safety Report 20363591 (Version 2)
Quarter: 2022Q3

REPORT INFORMATION
  Report Type: Spontaneous
  Country: US (occurrence: US)
  Receive Date: 20220121
  Receipt Date: 20220928
  Transmission Date: 20221027
  Serious: Yes (Other)
  Sender: FDA-Public Use
  Company Number: US-GILEAD-2022-0565992

PATIENT
  Sex: Male
  Weight: 64.853 kg

DRUGS (39)
  1. TRUVADA [Suspect]
     Active Substance: EMTRICITABINE\TENOFOVIR DISOPROXIL FUMARATE
     Indication: HIV infection
     Dosage: UNK
     Route: 048
     Dates: start: 2005, end: 2015
  2. STRIBILD [Suspect]
     Active Substance: COBICISTAT\ELVITEGRAVIR\EMTRICITABINE\TENOFOVIR DISOPROXIL FUMARATE
     Indication: HIV infection
     Dosage: UNK
     Route: 048
     Dates: start: 2005
  3. STRIBILD [Suspect]
     Active Substance: COBICISTAT\ELVITEGRAVIR\EMTRICITABINE\TENOFOVIR DISOPROXIL FUMARATE
     Dosage: UNK
     Route: 065
     Dates: start: 2015, end: 201801
  4. GENVOYA [Concomitant]
     Active Substance: COBICISTAT\ELVITEGRAVIR\EMTRICITABINE\TENOFOVIR ALAFENAMIDE FUMARATE
  5. CABENUVA [Concomitant]
     Active Substance: CABOTEGRAVIR\RILPIVIRINE
  6. ATROPINE [Concomitant]
     Active Substance: ATROPINE
  7. AMLODIPINE [Concomitant]
     Active Substance: AMLODIPINE BESYLATE
  8. FLUTICASONE [Concomitant]
     Active Substance: FLUTICASONE
  9. OMEPRAZOLE [Concomitant]
     Active Substance: OMEPRAZOLE
  10. CREON [Concomitant]
     Active Substance: PANCRELIPASE AMYLASE\PANCRELIPASE LIPASE\PANCRELIPASE PROTEASE
  11. AZITHROMYCIN [Concomitant]
     Active Substance: AZITHROMYCIN
  12. TRAMADOL [Concomitant]
     Active Substance: TRAMADOL
  13. LOPERAMIDE [Concomitant]
     Active Substance: LOPERAMIDE
  14. CYPROHEPTADINE [Concomitant]
     Active Substance: CYPROHEPTADINE
  15. PRAVASTATIN [Concomitant]
     Active Substance: PRAVASTATIN
  16. ASPIRIN [Concomitant]
     Active Substance: ASPIRIN
  17. DILTIAZEM [Concomitant]
     Active Substance: DILTIAZEM
  18. MYLANTA [Concomitant]
     Active Substance: ALUMINUM HYDROXIDE\DIMETHICONE\MAGNESIUM HYDROXIDE
  19. CETIRIZINE [Concomitant]
     Active Substance: CETIRIZINE HYDROCHLORIDE
  20. DIPHENHYDRAMINE [Concomitant]
     Active Substance: DIPHENHYDRAMINE
  21. CHLORHEXIDINE GLUCONATE [Concomitant]
     Active Substance: CHLORHEXIDINE GLUCONATE
  22. VALACYCLOVIR HYDROCHLORIDE [Concomitant]
     Active Substance: VALACYCLOVIR HYDROCHLORIDE
  23. VITAMIN E [Concomitant]
     Active Substance: .ALPHA.-TOCOPHEROL
  24. OXYBUTYNIN [Concomitant]
     Active Substance: OXYBUTYNIN
  25. TAMSULOSIN [Concomitant]
     Active Substance: TAMSULOSIN
  26. DICLOFENAC SODIUM [Concomitant]
     Active Substance: DICLOFENAC SODIUM
  27. MAPAP [Concomitant]
     Active Substance: ACETAMINOPHEN
  28. ALBUTEROL [Concomitant]
     Active Substance: ALBUTEROL
  29. ALBUTEROL SULFATE [Concomitant]
     Active Substance: ALBUTEROL SULFATE
  30. DOXYCYCLINE [Concomitant]
     Active Substance: DOXYCYCLINE
  31. DULOXETINE [Concomitant]
     Active Substance: DULOXETINE
  32. BENZONATATE [Concomitant]
     Active Substance: BENZONATATE
  33. OSELTAMIVIR PHOSPHATE [Concomitant]
     Active Substance: OSELTAMIVIR PHOSPHATE
  34. LEVOFLOXACIN [Concomitant]
     Active Substance: LEVOFLOXACIN
  35. ROBAFEN COUGH [Concomitant]
     Active Substance: DEXTROMETHORPHAN HYDROBROMIDE
  36. PREDNISONE [Concomitant]
     Active Substance: PREDNISONE
  37. BREO ELLIPTA [Concomitant]
     Active Substance: FLUTICASONE FUROATE\VILANTEROL TRIFENATATE
  38. MELOXICAM [Concomitant]
     Active Substance: MELOXICAM
  39. CYCLOBENZAPRINE [Concomitant]
     Active Substance: CYCLOBENZAPRINE

REACTIONS (9)
  - Osteoporosis [Unknown]
  - Bone demineralisation [Unknown]
  - Bone density decreased [Unknown]
  - Pain [Not Recovered/Not Resolved]
  - Emotional distress [Not Recovered/Not Resolved]
  - Anxiety [Not Recovered/Not Resolved]
  - Anhedonia [Not Recovered/Not Resolved]
  - Osteopenia [Not Recovered/Not Resolved]
  - Arthralgia [Not Recovered/Not Resolved]

NARRATIVE: CASE EVENT DATE: 20170101
